FAERS Safety Report 6178733-9 (Version None)
Quarter: 2009Q2

REPORT INFORMATION
  Report Type: 
  Country: None (occurrence: None)
  Receive Date: 20090504
  Receipt Date: 20081104
  Transmission Date: 20091009
  Serious: No
  Sender: FDA-Public Use
  Company Number: US-ALEXION-A200800329

PATIENT

DRUGS (7)
  1. SOLIRIS [Suspect]
     Indication: PAROXYSMAL NOCTURNAL HAEMOGLOBINURIA
     Dosage: UNK, UNK
     Route: 042
  2. INFLUENZA VACCINE [Concomitant]
     Dosage: UNK, SINGLE
     Dates: start: 20081023, end: 20081023
  3. EXJADE [Concomitant]
  4. ACTONEL [Concomitant]
     Dosage: 35 MG, QW
  5. DANAZOL [Concomitant]
     Dosage: 200 MG, BID
  6. FOLIC ACID [Concomitant]
  7. AVAPRO [Concomitant]
     Dosage: 150 MG, QD

REACTIONS (4)
  - ASTHENIA [None]
  - DYSPEPSIA [None]
  - HAEMOGLOBIN DECREASED [None]
  - WHITE BLOOD CELL COUNT DECREASED [None]
